FAERS Safety Report 6082985-3 (Version None)
Quarter: 2009Q1

REPORT INFORMATION
  Report Type: 
  Country: None (occurrence: None)
  Receive Date: 20090218
  Receipt Date: 20090216
  Transmission Date: 20090719
  Serious: Yes (Other)
  Sender: FDA-Public Use
  Company Number: TW-ROXANE LABORATORIES, INC.-2009-RO-00160RO

PATIENT
  Age: 76 Year
  Sex: Female

DRUGS (8)
  1. ALPRAZOLAM [Suspect]
     Indication: ANXIETY
     Dosage: .5MG
  2. ALPRAZOLAM [Suspect]
     Indication: DEPRESSION
  3. SERTRALINE [Suspect]
     Indication: ANXIETY
     Dosage: 25MG
  4. SERTRALINE [Suspect]
     Indication: DEPRESSION
  5. LORAZEPAM [Suspect]
     Indication: ANXIETY
     Dosage: .5MG
  6. LORAZEPAM [Suspect]
     Indication: DEPRESSION
  7. STEROID [Concomitant]
     Indication: PHOTOSENSITIVITY ALLERGIC REACTION
  8. IXEL [Concomitant]
     Indication: ANTIDEPRESSANT THERAPY
     Dosage: 50MG

REACTIONS (1)
  - PHOTOSENSITIVITY ALLERGIC REACTION [None]
